FAERS Safety Report 22154786 (Version 2)
Quarter: 2023Q2

REPORT INFORMATION
  Report Type: Spontaneous
  Country: US (occurrence: US)
  Receive Date: 20230330
  Receipt Date: 20230418
  Transmission Date: 20230722
  Serious: No
  Sender: FDA-Public Use
  Company Number: US-BRISTOL-MYERS SQUIBB COMPANY-2023-042116

PATIENT
  Age: 78 Year
  Sex: Female

DRUGS (1)
  1. LENALIDOMIDE [Suspect]
     Active Substance: LENALIDOMIDE
     Indication: Plasma cell myeloma in remission
     Dosage: FREQUENCY: TAKE 1 CAPSULE (10MG TOTAL) BY MOUTH
     Route: 048
     Dates: start: 20220711

REACTIONS (3)
  - Product distribution issue [Unknown]
  - Tooth disorder [Not Recovered/Not Resolved]
  - Product dose omission issue [Unknown]
